FAERS Safety Report 4707189-5 (Version None)
Quarter: 2005Q3

REPORT INFORMATION
  Report Type: 
  Country: None (occurrence: None)
  Receive Date: 20050701
  Receipt Date: 20050621
  Transmission Date: 20060218
  Serious: Yes (Hospitalization)
  Sender: FDA-Public Use
  Company Number: 2005-129005-NL

PATIENT
  Age: 19 Year
  Sex: Male

DRUGS (2)
  1. MIRTAZAPINE [Suspect]
     Indication: ANXIETY
     Dosage: 7.5 MG/15 MG ORAL
     Route: 048
     Dates: start: 20050510, end: 20050501
  2. MIRTAZAPINE [Suspect]
     Indication: ANXIETY
     Dosage: 7.5 MG/15 MG ORAL
     Route: 048
     Dates: start: 20050517, end: 20050520

REACTIONS (7)
  - BLOOD CREATININE INCREASED [None]
  - CONTUSION [None]
  - ECCHYMOSIS [None]
  - PAINFUL RESPIRATION [None]
  - PETECHIAE [None]
  - RASH [None]
  - RHABDOMYOLYSIS [None]
